FAERS Safety Report 7349182-2 (Version None)
Quarter: 2011Q1

REPORT INFORMATION
  Report Type: 
  Country: None (occurrence: None)
  Receive Date: 20110314
  Receipt Date: 20110304
  Transmission Date: 20110831
  Serious: Yes (Hospitalization, Other)
  Sender: FDA-Public Use
  Company Number: US-PFIZER INC-2010182467

PATIENT
  Sex: Female

DRUGS (2)
  1. NICORETTE [Concomitant]
     Indication: SMOKING CESSATION THERAPY
     Dosage: UNK
     Dates: start: 20070901, end: 20090201
  2. CHANTIX [Suspect]
     Indication: SMOKING CESSATION THERAPY
     Dosage: STARTER MONTH PACK AND 1 REFILL
     Dates: start: 20080401, end: 20080501

REACTIONS (12)
  - PANIC ATTACK [None]
  - MAJOR DEPRESSION [None]
  - PSYCHOTIC DISORDER [None]
  - HALLUCINATION, AUDITORY [None]
  - HALLUCINATION, VISUAL [None]
  - ANXIETY DISORDER [None]
  - SUICIDAL IDEATION [None]
  - ABNORMAL BEHAVIOUR [None]
  - MENTAL DISORDER [None]
  - SCHIZOPHRENIA [None]
  - DELUSION [None]
  - PARANOIA [None]
